FAERS Safety Report 6204919-0 (Version None)
Quarter: 2009Q2

REPORT INFORMATION
  Report Type: 
  Country: None (occurrence: None)
  Receive Date: 20090526
  Receipt Date: 20090520
  Transmission Date: 20091009
  Serious: Yes (Congenital Anomaly)
  Sender: FDA-Public Use
  Company Number: ADE2008-0336

PATIENT
  Age: 39 Week
  Sex: Male
  Weight: 3.34 kg

DRUGS (1)
  1. ZIDOVUDINE [Suspect]
     Indication: HIV INFECTION
     Dosage: 500 MG, TRANSPLACENT
     Route: 064
     Dates: start: 20080805, end: 20081015

REACTIONS (4)
  - CAESAREAN SECTION [None]
  - MATERNAL ALCOHOL USE [None]
  - MATERNAL DRUGS AFFECTING FOETUS [None]
  - VENTRICULAR HYPOPLASIA [None]
